FAERS Safety Report 4654768-X (Version None)
Quarter: 2005Q2

REPORT INFORMATION
  Report Type: 
  Country: None (occurrence: None)
  Receive Date: 20050504
  Receipt Date: 20050425
  Transmission Date: 20051028
  Serious: Yes (Hospitalization, Other)
  Sender: FDA-Public Use
  Company Number: 2005JP000923

PATIENT
  Age: 16 Year
  Sex: Male
  Weight: 35 kg

DRUGS (7)
  1. PROGRAF [Suspect]
     Indication: RENAL TRANSPLANT
     Dosage: IV DRIP
     Route: 041
     Dates: start: 19991212, end: 19991216
  2. PROGRAF [Suspect]
     Indication: RENAL TRANSPLANT
     Dosage: IV DRIP
     Route: 041
     Dates: start: 19991216
  3. METHYLPREDNISOLONE [Concomitant]
  4. MIZORIBINE [Concomitant]
  5. SELBEX (TEPRENONE) [Concomitant]
  6. URINORM (BENZBROMARONE) [Concomitant]
  7. ISODINE (POVIDONE IODINE) [Concomitant]

REACTIONS (1)
  - BLOOD PARATHYROID HORMONE INCREASED [None]
